FAERS Safety Report 10751150 (Version 3)
Quarter: 2017Q4

REPORT INFORMATION
  Report Type: Spontaneous
  Country: US (occurrence: US)
  Receive Date: 20150130
  Receipt Date: 20171130
  Transmission Date: 20180320
  Serious: No
  Sender: FDA-Public Use
  Company Number: US-PFIZER INC-2015037303

PATIENT
  Age: 72 Year
  Sex: Female

DRUGS (1)
  1. ARICEPT [Suspect]
     Active Substance: DONEPEZIL HYDROCHLORIDE
     Dosage: UNK

REACTIONS (4)
  - Vomiting [Unknown]
  - Drug hypersensitivity [Unknown]
  - Nausea [Unknown]
  - Gastrooesophageal reflux disease [Unknown]
